FAERS Safety Report 5824636-6 (Version None)
Quarter: 2008Q3

REPORT INFORMATION
  Report Type: 
  Country: None (occurrence: None)
  Receive Date: 20080728
  Receipt Date: 20080718
  Transmission Date: 20090109
  Serious: Yes (Hospitalization)
  Sender: FDA-Public Use
  Company Number: JP-EISAI MEDICAL RESEARCH-E2090-00469-SPO-JP

PATIENT
  Sex: Male
  Weight: 20.6 kg

DRUGS (8)
  1. EXCEGRAN [Suspect]
     Indication: EPILEPSY
     Route: 048
     Dates: start: 20080430, end: 20080101
  2. EXCEGRAN [Suspect]
     Dosage: DOSE WAS GRADUALLY INCREASED
     Route: 048
     Dates: start: 20080101, end: 20080515
  3. EXCEGRAN [Suspect]
     Route: 048
     Dates: start: 20080518, end: 20080520
  4. TEGRETOL [Suspect]
     Indication: EPILEPSY
     Route: 048
     Dates: start: 20071221, end: 20080515
  5. ASVERIN [Suspect]
     Indication: UPPER RESPIRATORY TRACT INFLAMMATION
     Route: 048
     Dates: start: 20080514, end: 20080515
  6. MUCODYNE [Suspect]
     Indication: UPPER RESPIRATORY TRACT INFLAMMATION
     Route: 048
     Dates: start: 20080514, end: 20080515
  7. CEFDINIR [Suspect]
     Indication: UPPER RESPIRATORY TRACT INFLAMMATION
     Route: 048
     Dates: start: 20080514, end: 20080515
  8. ACETAMINOPHEN [Suspect]
     Indication: UPPER RESPIRATORY TRACT INFLAMMATION
     Dates: start: 20080514, end: 20080515

REACTIONS (1)
  - STEVENS-JOHNSON SYNDROME [None]
